FAERS Safety Report 8207527-5 (Version None)
Quarter: 2012Q1

REPORT INFORMATION
  Report Type: 
  Country: None (occurrence: None)
  Receive Date: 20120314
  Receipt Date: 20120302
  Transmission Date: 20120608
  Serious: Yes (Hospitalization)
  Sender: FDA-Public Use
  Company Number: FR-BRISTOL-MYERS SQUIBB COMPANY-16411944

PATIENT
  Age: 58 Year
  Sex: Female

DRUGS (6)
  1. CETUXIMAB [Suspect]
     Indication: NON-SMALL CELL LUNG CANCER
     Dosage: LAST INF ON 04OCT2011
     Dates: start: 20110820
  2. KABIVEN [Concomitant]
     Dosage: 1DF=800KCAL
  3. PEMETREXED DISODIUM [Suspect]
     Indication: NON-SMALL CELL LUNG CANCER
     Dosage: LAST INF ON 04OCT2011
     Dates: start: 20110820
  4. CISPLATIN [Suspect]
     Indication: NON-SMALL CELL LUNG CANCER
     Dosage: LAST INF ON 04OCT2011
     Dates: start: 20110820
  5. MORPHINE SULFATE [Concomitant]
  6. FOLIC ACID [Concomitant]

REACTIONS (8)
  - DECREASED APPETITE [None]
  - RENAL FAILURE [None]
  - DEHYDRATION [None]
  - HAEMOGLOBIN DECREASED [None]
  - INTRACRANIAL PRESSURE INCREASED [None]
  - CYSTITIS [None]
  - HYPONATRAEMIA [None]
  - ANAEMIA [None]
